FAERS Safety Report 4946998-4 (Version None)
Quarter: 2006Q1

REPORT INFORMATION
  Report Type: 
  Country: None (occurrence: None)
  Receive Date: 20060317
  Receipt Date: 20060221
  Transmission Date: 20060701
  Serious: Yes (Other)
  Sender: FDA-Public Use
  Company Number: US-ROCHE-437700

PATIENT
  Age: 63 Year
  Sex: Female
  Weight: 86 kg

DRUGS (8)
  1. PEGASYS [Suspect]
     Dosage: ROUTE REPORTED AS INJECTION.
     Route: 050
     Dates: start: 20051115, end: 20060222
  2. COPEGUS [Suspect]
     Route: 048
     Dates: start: 20051115, end: 20060222
  3. NORVASC [Concomitant]
     Route: 048
  4. PLAVIX [Concomitant]
     Route: 048
  5. LISINOPRIL [Concomitant]
     Route: 048
  6. PROCRIT [Concomitant]
     Indication: ANAEMIA
     Dates: start: 20060115
  7. FOLIC ACID [Concomitant]
     Indication: ANAEMIA
     Dates: start: 20060115
  8. EPOGEN [Concomitant]
     Indication: HEPATITIS C

REACTIONS (2)
  - EYE HAEMORRHAGE [None]
  - INTRAOCULAR PRESSURE INCREASED [None]
